FAERS Safety Report 12725576 (Version 1)
Quarter: 2016Q3

REPORT INFORMATION
  Report Type: Spontaneous
  Country: US (occurrence: US)
  Receive Date: 20160906
  Receipt Date: 20160906
  Transmission Date: 20161109
  Serious: No
  Sender: FDA-Public Use
  Company Number: None

PATIENT
  Age: 28 Year
  Sex: Female
  Weight: 52.65 kg

DRUGS (1)
  1. WELLBUTRIN [Suspect]
     Active Substance: BUPROPION HYDROCHLORIDE
     Indication: SMOKING CESSATION THERAPY
     Dosage: 1 TABLET BID ORAL
     Route: 048
     Dates: start: 20160724, end: 20160804

REACTIONS (4)
  - Urticaria [None]
  - Arthralgia [None]
  - Rash [None]
  - Contusion [None]

NARRATIVE: CASE EVENT DATE: 20160803
